FAERS Safety Report 9411462 (Version 1)
Quarter: 2013Q3

REPORT INFORMATION
  Report Type: Spontaneous
  Country: US (occurrence: US)
  Receive Date: 20130722
  Receipt Date: 20130722
  Transmission Date: 20140515
  Serious: No
  Sender: FDA-Public Use
  Company Number: US-009507513-1307USA008032

PATIENT
  Sex: Female

DRUGS (11)
  1. VYTORIN [Suspect]
     Indication: BLOOD CHOLESTEROL INCREASED
     Dosage: 10/40 MG/DAY
     Route: 048
     Dates: end: 20130710
  2. ASPIRIN [Concomitant]
     Dosage: 81 MG, QD
  3. LUMIGAN [Concomitant]
     Dosage: ONCE DAILY BOTH EYES
  4. CARVEDILOL [Concomitant]
     Dosage: 6.25 MG, BID
  5. ESTRADIOL [Concomitant]
     Dosage: THREE TIMES WEEKLY
  6. NOVOLOG [Concomitant]
     Dosage: 3.5-5.5 UNITS AT MEAL TIME ONLY
  7. LANTUS [Concomitant]
     Dosage: 7 UNITS PER NIGHT ONLY
  8. LEVOTHYROXINE SODIUM [Concomitant]
     Dosage: UNK UNK, QD
  9. WARFARIN [Concomitant]
     Dosage: 5 MG / THREE TIMES PER WEEK AND 2.5 MG/ FOUR TIMES A WEEK
  10. MONTELUKAST SODIUM [Concomitant]
     Dosage: UNK UNK, QD
  11. TYLENOL [Concomitant]

REACTIONS (2)
  - Flatulence [Unknown]
  - Abdominal discomfort [Unknown]
